FAERS Safety Report 21924278 (Version 2)
Quarter: 2023Q1

REPORT INFORMATION
  Report Type: Spontaneous
  Country: CZ (occurrence: CZ)
  Receive Date: 20230130
  Receipt Date: 20230216
  Transmission Date: 20230418
  Serious: Yes (Hospitalization, Other)
  Sender: FDA-Public Use
  Company Number: CZ-CELLTRION INC.-2023CZ001423

PATIENT

DRUGS (1)
  1. INFLIXIMAB [Suspect]
     Active Substance: INFLIXIMAB
     Indication: Ankylosing spondylitis
     Dosage: 120 MILLIGRAM, Q2WEEKS
     Route: 058

REACTIONS (3)
  - Meniscus injury [Recovering/Resolving]
  - Arthroscopy [Recovering/Resolving]
  - Meniscus removal [Recovering/Resolving]

NARRATIVE: CASE EVENT DATE: 20221108
